FAERS Safety Report 9722183 (Version 3)
Quarter: 2013Q4

REPORT INFORMATION
  Report Type: Spontaneous
  Country: IT (occurrence: IT)
  Receive Date: 20131202
  Receipt Date: 20131221
  Transmission Date: 20140711
  Serious: Yes (Other)
  Sender: FDA-Public Use
  Company Number: IT-ACCORD-020096

PATIENT
  Age: 75 Year
  Sex: Female

DRUGS (2)
  1. SERTRALINE [Suspect]
     Indication: ANXIETY
     Route: 048
     Dates: start: 20130801, end: 20130803
  2. DONEPEZIL [Suspect]
     Indication: COGNITIVE DISORDER
     Route: 048
     Dates: start: 20130801, end: 20130803

REACTIONS (1)
  - Delusional disorder, persecutory type [Recovering/Resolving]
